FAERS Safety Report 26015987 (Version 1)
Quarter: 2025Q4

REPORT INFORMATION
  Report Type: Spontaneous
  Country: CN (occurrence: CN)
  Receive Date: 20251109
  Receipt Date: 20251109
  Transmission Date: 20260117
  Serious: Yes (Hospitalization)
  Sender: BEIGENE
  Company Number: CN-BEIGENE-BGN-2025-019076

PATIENT
  Age: 90 Year

DRUGS (16)
  1. TISLELIZUMAB [Suspect]
     Active Substance: TISLELIZUMAB
     Indication: Gastric cancer
     Dosage: 200 MILLIGRAM, Q3WK, D1
  2. TISLELIZUMAB [Suspect]
     Active Substance: TISLELIZUMAB
     Indication: Metastases to lymph nodes
     Dosage: 200 MILLIGRAM, Q3WK, D1
  3. TISLELIZUMAB [Suspect]
     Active Substance: TISLELIZUMAB
     Dosage: 200 MILLIGRAM, Q3WK, D1
     Route: 041
  4. TISLELIZUMAB [Suspect]
     Active Substance: TISLELIZUMAB
     Dosage: 200 MILLIGRAM, Q3WK, D1
     Route: 041
  5. TISLELIZUMAB [Suspect]
     Active Substance: TISLELIZUMAB
     Dosage: 200 MILLIGRAM, Q3WK, D1 (THE 6TH CYCLE)
  6. TISLELIZUMAB [Suspect]
     Active Substance: TISLELIZUMAB
     Dosage: 200 MILLIGRAM, Q3WK, D1 (THE 6TH CYCLE)
  7. TISLELIZUMAB [Suspect]
     Active Substance: TISLELIZUMAB
     Dosage: 200 MILLIGRAM, Q3WK, D1 (THE 6TH CYCLE)
     Route: 041
  8. TISLELIZUMAB [Suspect]
     Active Substance: TISLELIZUMAB
     Dosage: 200 MILLIGRAM, Q3WK, D1 (THE 6TH CYCLE)
     Route: 041
  9. PACLITAXEL [Concomitant]
     Active Substance: PACLITAXEL
     Indication: Gastric cancer
     Dosage: 50 MILLIGRAM, Q3WK, D1
  10. PACLITAXEL [Concomitant]
     Active Substance: PACLITAXEL
     Indication: Metastases to lymph nodes
     Dosage: 50 MILLIGRAM, Q3WK, D1
     Route: 041
  11. PACLITAXEL [Concomitant]
     Active Substance: PACLITAXEL
     Dosage: 50 MILLIGRAM, Q3WK, D1 ( THE 6TH CYCLE)
  12. PACLITAXEL [Concomitant]
     Active Substance: PACLITAXEL
     Dosage: 50 MILLIGRAM, Q3WK, D1 ( THE 6TH CYCLE)
     Route: 041
  13. GIMERACIL\OTERACIL\TEGAFUR [Concomitant]
     Active Substance: GIMERACIL\OTERACIL POTASSIUM\TEGAFUR
     Indication: Gastric cancer
     Dosage: 20 MILLIGRAM, BID, D1-14
  14. GIMERACIL\OTERACIL\TEGAFUR [Concomitant]
     Active Substance: GIMERACIL\OTERACIL POTASSIUM\TEGAFUR
     Indication: Metastases to lymph nodes
     Dosage: 20 MILLIGRAM, BID, D1-14
     Route: 048
  15. GIMERACIL\OTERACIL\TEGAFUR [Concomitant]
     Active Substance: GIMERACIL\OTERACIL POTASSIUM\TEGAFUR
     Dosage: 20 MILLIGRAM, BID, D1-14 (THE 6TH CYCLE)
  16. GIMERACIL\OTERACIL\TEGAFUR [Concomitant]
     Active Substance: GIMERACIL\OTERACIL POTASSIUM\TEGAFUR
     Dosage: 20 MILLIGRAM, BID, D1-14 (THE 6TH CYCLE)
     Route: 048

REACTIONS (1)
  - Enteritis [Recovering/Resolving]
